FAERS Safety Report 16402857 (Version 1)
Quarter: 2019Q2

REPORT INFORMATION
  Report Type: Spontaneous
  Country: NL (occurrence: NL)
  Receive Date: 20190607
  Receipt Date: 20190607
  Transmission Date: 20190711
  Serious: Yes (Disabling)
  Sender: FDA-Public Use
  Company Number: NL-TEVA-2019-NL-1059463

PATIENT
  Age: 50 Year
  Sex: Female
  Weight: 116 kg

DRUGS (4)
  1. METOPROLOL RET 200MG [Concomitant]
     Dosage: 1D1T
     Dates: start: 20110307
  2. ENAL/HCT 20/12,5MG [Concomitant]
     Dosage: 1D1T
     Dates: start: 20111209
  3. NIFEDIPINE CAPSULE, 10 MG (MILLIGRAM) [Suspect]
     Active Substance: NIFEDIPINE
     Indication: ESSENTIAL HYPERTENSION
     Dosage: 1D1C
     Route: 065
     Dates: start: 20090909, end: 20190410
  4. COLECALC 25.000IE [Concomitant]
     Dosage: 1M1C
     Dates: start: 20190301

REACTIONS (7)
  - Muscle spasms [Unknown]
  - Myalgia [Unknown]
  - Headache [Unknown]
  - Depression [Unknown]
  - Weight increased [Unknown]
  - Palpitations [Unknown]
  - Sleep disorder [Unknown]

NARRATIVE: CASE EVENT DATE: 20090909
